FAERS Safety Report 16749872 (Version 2)
Quarter: 2019Q4

REPORT INFORMATION
  Report Type: Spontaneous
  Country: IT (occurrence: IT)
  Receive Date: 20190828
  Receipt Date: 20191108
  Transmission Date: 20200122
  Serious: Yes (Hospitalization, Other)
  Sender: FDA-Public Use
  Company Number: IT-SA-2019SA229645

PATIENT
  Age: 66 Year
  Sex: Male

DRUGS (7)
  1. BIVIS [Concomitant]
     Active Substance: AMLODIPINE BESYLATE\OLMESARTAN MEDOXOMIL
     Indication: HYPERTENSION
     Dosage: 1 DF, UNK
     Route: 048
  2. OMNIC [Concomitant]
     Active Substance: TAMSULOSIN HYDROCHLORIDE
     Indication: BENIGN PROSTATIC HYPERPLASIA
     Dosage: 1 DF, UNK
     Route: 048
  3. LUCEN [ESOMEPRAZOLE MAGNESIUM] [Concomitant]
     Indication: EROSIVE OESOPHAGITIS
     Dosage: 1 DF, UNK
     Route: 048
  4. CLEXANE T [Suspect]
     Active Substance: ENOXAPARIN SODIUM
     Indication: PULMONARY EMBOLISM
     Dosage: 1 DF, QD
     Route: 058
     Dates: start: 20190417, end: 20190612
  5. PROPAFENONE HYDROCHLORIDE. [Concomitant]
     Active Substance: PROPAFENONE HYDROCHLORIDE
     Indication: VENTRICULAR TACHYARRHYTHMIA
     Dosage: 325 MG, UNK
     Route: 048
  6. MONOKET [Concomitant]
     Active Substance: ISOSORBIDE MONONITRATE
     Indication: CORONARY ARTERY INSUFFICIENCY
     Dosage: 1 DF, UNK
     Route: 048
  7. LESCOL [Concomitant]
     Active Substance: FLUVASTATIN SODIUM
     Indication: DYSLIPIDAEMIA
     Dosage: 1 DF, UNK
     Route: 048

REACTIONS (4)
  - Retinal detachment [Recovered/Resolved with Sequelae]
  - Retinal haemorrhage [Recovered/Resolved with Sequelae]
  - Pulmonary embolism [Recovered/Resolved with Sequelae]
  - Choroidal detachment [Recovered/Resolved with Sequelae]

NARRATIVE: CASE EVENT DATE: 20190521
